FAERS Safety Report 6311561-X (Version None)
Quarter: 2009Q3

REPORT INFORMATION
  Report Type: 
  Country: None (occurrence: None)
  Receive Date: 20090817
  Receipt Date: 20090811
  Transmission Date: 20100115
  Serious: Yes (Hospitalization, Other)
  Sender: FDA-Public Use
  Company Number: US-AVENTIS-200916652US

PATIENT
  Sex: Male
  Weight: 136 kg

DRUGS (10)
  1. LOVENOX [Suspect]
     Indication: DEEP VEIN THROMBOSIS
     Dates: start: 20090701, end: 20090101
  2. LOVENOX [Suspect]
     Dates: start: 20090101, end: 20090801
  3. LOVENOX [Suspect]
     Dates: start: 20090811
  4. PLAVIX [Suspect]
     Dates: end: 20090101
  5. FLOMAX [Concomitant]
     Dosage: DOSE: UNK
  6. CAPTOPRIL [Concomitant]
     Dosage: DOSE: UNK
  7. NIASPAN [Concomitant]
     Dosage: DOSE: UNK
  8. FEXOFENADINE [Concomitant]
     Dosage: DOSE: UNK
  9. METOPROLOL [Concomitant]
     Dosage: DOSE: UNK
  10. UNKNOWN DRUG [Concomitant]
     Dosage: DOSE: UNK

REACTIONS (6)
  - HAEMATOMA [None]
  - HAEMORRHAGE [None]
  - INJECTION SITE HAEMATOMA [None]
  - INJECTION SITE HAEMORRHAGE [None]
  - SWELLING [None]
  - WRONG TECHNIQUE IN DRUG USAGE PROCESS [None]
